FAERS Safety Report 8495904-7 (Version None)
Quarter: 2012Q3

REPORT INFORMATION
  Report Type: 
  Country: None (occurrence: None)
  Receive Date: 20120709
  Receipt Date: 20120629
  Transmission Date: 20120928
  Serious: Yes (Death, Hospitalization)
  Sender: FDA-Public Use
  Company Number: US-GLAXOSMITHKLINE-A0781599A

PATIENT
  Age: 56 Year
  Sex: Male
  Weight: 175 kg

DRUGS (4)
  1. GLARGINE [Concomitant]
     Dates: start: 20031101, end: 20061201
  2. AVANDIA [Suspect]
     Indication: DIABETES MELLITUS
     Dosage: 4MG UNKNOWN
     Route: 048
  3. METFORMIN HCL [Concomitant]
     Dates: start: 20030101, end: 20070101
  4. AVANDAMET [Suspect]
     Indication: DIABETES MELLITUS
     Dates: start: 20030101, end: 20061201

REACTIONS (4)
  - FLUID RETENTION [None]
  - CARDIAC FAILURE CONGESTIVE [None]
  - DEATH [None]
  - HEART RATE IRREGULAR [None]
